FAERS Safety Report 14365260 (Version 1)
Quarter: 2018Q1

REPORT INFORMATION
  Report Type: Spontaneous
  Country: UA (occurrence: UA)
  Receive Date: 20180108
  Receipt Date: 20180108
  Transmission Date: 20180509
  Serious: Yes (Other)
  Sender: FDA-Public Use
  Company Number: UA-BAUSCH-BL-2017-036199

PATIENT
  Age: 60 Year
  Sex: Female

DRUGS (1)
  1. LUXFEN [Suspect]
     Active Substance: BRIMONIDINE TARTRATE
     Indication: PRODUCT USED FOR UNKNOWN INDICATION
     Route: 065
     Dates: start: 20171126, end: 20171226

REACTIONS (1)
  - Intraocular pressure increased [Unknown]

NARRATIVE: CASE EVENT DATE: 20171226
